FAERS Safety Report 8380394-5 (Version None)
Quarter: 2012Q2

REPORT INFORMATION
  Report Type: 
  Country: None (occurrence: None)
  Receive Date: 20120523
  Receipt Date: 20120517
  Transmission Date: 20120825
  Serious: Yes (Death, Hospitalization)
  Sender: FDA-Public Use
  Company Number: US-GLAXOSMITHKLINE-A0733979A

PATIENT
  Age: 74 Year
  Sex: Male
  Weight: 65.9 kg

DRUGS (8)
  1. SODIUM BICARBONATE [Concomitant]
  2. TOPROL-XL [Concomitant]
  3. NORVASC [Concomitant]
  4. AVANDIA [Suspect]
     Indication: TYPE 2 DIABETES MELLITUS
     Dosage: 8MG PER DAY
     Route: 048
     Dates: start: 20020101, end: 20060711
  5. DIGOXIN [Concomitant]
  6. ZOCOR [Concomitant]
  7. ULTRAM [Concomitant]
  8. WARFARIN SODIUM [Concomitant]

REACTIONS (11)
  - CARDIAC FAILURE CONGESTIVE [None]
  - TRANSIENT ISCHAEMIC ATTACK [None]
  - BASAL GANGLIA INFARCTION [None]
  - CARDIOVASCULAR DISORDER [None]
  - ATRIAL FIBRILLATION [None]
  - CORONARY ARTERY DISEASE [None]
  - HYPERTENSION [None]
  - RENAL FAILURE [None]
  - HYPERLIPIDAEMIA [None]
  - CARDIAC ARREST [None]
  - MYOCARDIAL INFARCTION [None]
